FAERS Safety Report 11306456 (Version 1)
Quarter: 2015Q3

REPORT INFORMATION
  Report Type: Spontaneous
  Country: BR (occurrence: BR)
  Receive Date: 20150723
  Receipt Date: 20150723
  Transmission Date: 20151125
  Serious: Yes (Hospitalization, Other)
  Sender: FDA-Public Use
  Company Number: BR-ASTRAZENECA-2015SE04385

PATIENT
  Age: 11447 Day
  Sex: Female

DRUGS (14)
  1. SORINE [Concomitant]
     Active Substance: SOTALOL HYDROCHLORIDE
     Indication: RHINITIS
     Dosage: AS REQUIRED
     Route: 045
  2. NEXIUM [Suspect]
     Active Substance: ESOMEPRAZOLE MAGNESIUM
     Indication: GASTRITIS
     Route: 048
     Dates: start: 201502, end: 20150622
  3. PANTOPRAZOLE [Concomitant]
     Active Substance: PANTOPRAZOLE SODIUM
     Indication: GASTRITIS
  4. UNSPECIFIED ANTIBIOTIC [Concomitant]
     Active Substance: UNSPECIFIED INGREDIENT
     Indication: CONJUNCTIVITIS
  5. NEXIUM [Suspect]
     Active Substance: ESOMEPRAZOLE MAGNESIUM
     Indication: GASTRITIS
     Route: 048
     Dates: start: 20150112, end: 201502
  6. BROMOPRIDE [Concomitant]
     Active Substance: BROMOPRIDE
     Indication: GASTRITIS
  7. FOLIC ACID. [Concomitant]
     Active Substance: FOLIC ACID
  8. NEXIUM [Suspect]
     Active Substance: ESOMEPRAZOLE MAGNESIUM
     Indication: OESOPHAGITIS
     Route: 048
     Dates: start: 201502, end: 20150622
  9. DRAMIN B6 [Concomitant]
     Indication: NAUSEA
     Dosage: AS REQUIRED
     Route: 048
  10. DRAMIN B6 [Concomitant]
     Indication: NAUSEA
     Dosage: AS REQUIRED
     Route: 048
  11. NORDETTE [Concomitant]
     Active Substance: ETHINYL ESTRADIOL\LEVONORGESTREL
     Indication: CONTRACEPTION
  12. NEXIUM [Suspect]
     Active Substance: ESOMEPRAZOLE MAGNESIUM
     Indication: OESOPHAGITIS
     Route: 048
     Dates: start: 20150112, end: 201502
  13. UTROGESTAN [Concomitant]
     Active Substance: PROGESTERONE
  14. VONAU [Concomitant]
     Active Substance: ONDANSETRON HYDROCHLORIDE
     Indication: NAUSEA

REACTIONS (4)
  - Postpartum disorder [Recovered/Resolved]
  - Gastritis [Recovered/Resolved]
  - Exposure during pregnancy [Recovered/Resolved]
  - Rhinitis [Not Recovered/Not Resolved]

NARRATIVE: CASE EVENT DATE: 20150112
